FAERS Safety Report 6369823-6 (Version None)
Quarter: 2009Q3

REPORT INFORMATION
  Report Type: 
  Country: None (occurrence: None)
  Receive Date: 20090923
  Receipt Date: 20090910
  Transmission Date: 20100115
  Serious: Yes (Other)
  Sender: FDA-Public Use
  Company Number: GB-BAYER-200932351GPV

PATIENT
  Age: 87 Year
  Sex: Female

DRUGS (11)
  1. ACETYLSALICYLIC ACID [Suspect]
     Indication: DRUG USE FOR UNKNOWN INDICATION
  2. CLOPIDOGREL [Suspect]
     Indication: ACUTE CORONARY SYNDROME
  3. DALTEPARIN SODIUM [Suspect]
     Indication: DRUG USE FOR UNKNOWN INDICATION
  4. OMEPRAZOLE [Concomitant]
     Indication: DRUG USE FOR UNKNOWN INDICATION
  5. DIGOXIN [Concomitant]
     Indication: DRUG USE FOR UNKNOWN INDICATION
  6. PERINDOPRIL [Concomitant]
     Indication: DRUG USE FOR UNKNOWN INDICATION
  7. FUROSEMIDE [Concomitant]
     Indication: DRUG USE FOR UNKNOWN INDICATION
  8. CALCICHEW [Concomitant]
     Indication: DRUG USE FOR UNKNOWN INDICATION
  9. FOLATE [Concomitant]
     Indication: DRUG USE FOR UNKNOWN INDICATION
  10. CO-DYDRAMOL [Concomitant]
     Indication: DRUG USE FOR UNKNOWN INDICATION
  11. SALBUTAMOL [Concomitant]
     Indication: DRUG USE FOR UNKNOWN INDICATION

REACTIONS (4)
  - ESCHERICHIA SEPSIS [None]
  - HAEMOGLOBIN DECREASED [None]
  - MUCOSAL HAEMORRHAGE [None]
  - PANCYTOPENIA [None]
